FAERS Safety Report 25431480 (Version 1)
Quarter: 2025Q2

REPORT INFORMATION
  Report Type: Other
  Country: IT (occurrence: IT)
  Receive Date: 20250613
  Receipt Date: 20250613
  Transmission Date: 20250716
  Serious: Yes (Other)
  Sender: Integrated Therapeutic Solutions
  Company Number: IT-Integrated Therapeutic Solutions Inc.-2178427

PATIENT
  Age: 41 Year
  Sex: Female

DRUGS (1)
  1. PYLERA [Suspect]
     Active Substance: BISMUTH SUBCITRATE POTASSIUM\METRONIDAZOLE\TETRACYCLINE HYDROCHLORIDE
     Indication: Helicobacter gastritis
     Dates: start: 20250516, end: 20250528

REACTIONS (5)
  - Vertigo [Recovering/Resolving]
  - Paraesthesia [Recovering/Resolving]
  - Vision blurred [Recovering/Resolving]
  - Headache [Recovering/Resolving]
  - Balance disorder [Recovering/Resolving]

NARRATIVE: CASE EVENT DATE: 20250516
